FAERS Safety Report 25374305 (Version 1)
Quarter: 2025Q2

REPORT INFORMATION
  Report Type: Spontaneous
  Country: US (occurrence: None)
  Receive Date: 20250528
  Receipt Date: 20250528
  Transmission Date: 20250717
  Serious: Yes (Disabling)
  Sender: FDA-CTU
  Company Number: None

PATIENT
  Age: 60 Year
  Sex: Female
  Weight: 127.01 kg

DRUGS (18)
  1. LAMICTAL [Suspect]
     Active Substance: LAMOTRIGINE
     Indication: Epilepsy
     Route: 048
     Dates: start: 20190601, end: 20250320
  2. Atenolol 50 mg BID [Concomitant]
  3. Chlorthalidone 25 mg q AM [Concomitant]
  4. Cephalexin 1 gram PRN, all dental procedures [Concomitant]
  5. EC ASA 81 mg q PM [Concomitant]
  6. Famotidioe 20 mg q PM [Concomitant]
  7. Gabapentin 600 mg BID [Concomitant]
  8. Levetiracetam S00 mg BID [Concomitant]
  9. Restasis 1 drop per eye BID [Concomitant]
  10. Ropinirole HCL 4 mg q PM [Concomitant]
  11. Rosuvastatin 10 mg q PM [Concomitant]
  12. Spironolactone 50 mg q AM [Concomitant]
  13. Sunosi 150 mg q AM [Concomitant]
  14. Vit. 0-3 2000 units q AM [Concomitant]
  15. MULTI-VITAMIN [Concomitant]
     Active Substance: .ALPHA.-TOCOPHEROL ACETATE, DL-\ASCORBIC ACID\CYANOCOBALAMIN\FLUORIDE ION\FOLIC ACID\NIACIN\PYRIDOXI
  16. Omega-3 w/ DNA + EPA 1000 mg BID [Concomitant]
  17. Vit. C l000 mg BID [Concomitant]
  18. Tylenol ES 500 mg 1-2 tabs, q 4-6 hours PRN [Concomitant]

REACTIONS (12)
  - Myoclonus [None]
  - Gait disturbance [None]
  - Fall [None]
  - Diplopia [None]
  - Nystagmus [None]
  - Movement disorder [None]
  - Balance disorder [None]
  - Cerebral disorder [None]
  - Eye disorder [None]
  - Hypokinesia [None]
  - Dysstasia [None]
  - Insomnia [None]

NARRATIVE: CASE EVENT DATE: 20240301
